FAERS Safety Report 7228529-1 (Version None)
Quarter: 2011Q1

REPORT INFORMATION
  Report Type: 
  Country: None (occurrence: None)
  Receive Date: 20110117
  Receipt Date: 20110106
  Transmission Date: 20110831
  Serious: Yes (Hospitalization)
  Sender: FDA-Public Use
  Company Number: DK-BIOGENIDEC-2011BI000592

PATIENT
  Age: 28 Year
  Sex: Female

DRUGS (2)
  1. ACETAMINOPHEN [Concomitant]
  2. TYSABRI [Suspect]
     Indication: RELAPSING-REMITTING MULTIPLE SCLEROSIS
     Route: 042
     Dates: start: 20080101, end: 20101230

REACTIONS (1)
  - HEPATIC FAILURE [None]
